FAERS Safety Report 9178610 (Version 1)
Quarter: 2012Q4

REPORT INFORMATION
  Report Type: 
  Country: US (occurrence: US)
  Receive Date: 20121029
  Receipt Date: 20121029
  Transmission Date: 20130627
  Serious: No
  Sender: FDA-Public Use
  Company Number: US-AMGEN-USASP2012054263

PATIENT
  Age: 52 Year
  Sex: Male
  Weight: 87.98 kg

DRUGS (6)
  1. ENBREL [Suspect]
     Indication: PRODUCT USED FOR UNKNOWN INDICATION
     Dosage: 50 mg, qwk
     Route: 058
  2. BENADRYL                           /00000402/ [Concomitant]
     Dosage: 25 mg, UNK
  3. ALBUTEROL                          /00139501/ [Concomitant]
     Dosage: 0.083%
  4. IBU [Concomitant]
     Dosage: 800 mg, UNK
  5. SULFASALAZINE [Concomitant]
     Dosage: 500 mg, UNK
  6. ZICAM COLD + FLU [Concomitant]
     Dosage: UNK

REACTIONS (2)
  - Influenza like illness [Unknown]
  - Atypical pneumonia [Unknown]
